FAERS Safety Report 8421249-7 (Version None)
Quarter: 2012Q2

REPORT INFORMATION
  Report Type: 
  Country: None (occurrence: None)
  Receive Date: 20120608
  Receipt Date: 20120530
  Transmission Date: 20120825
  Serious: Yes (Other)
  Sender: FDA-Public Use
  Company Number: FR-JNJFOC-20120601372

PATIENT

DRUGS (9)
  1. LENALIDOMIDE [Suspect]
     Dosage: 5 MG TO 25 MG (5 MG PER DOSE LEVEL)(ON DAYS 1-14)
     Route: 048
  2. VINCRISTINE [Suspect]
     Indication: B-CELL LYMPHOMA
     Dosage: ON DAY 1  GIVEN EVERY 3 WEEKS FOR 6 CYCLES
     Route: 065
  3. PREDNISONE TAB [Suspect]
     Indication: B-CELL LYMPHOMA
     Dosage: ON DAYS 1-5   GIVEN EVERY WEEKS FOR 6 CYCLES
     Route: 065
  4. ASPIRIN [Suspect]
     Indication: PROPHYLAXIS
     Dosage: DAILY
     Route: 048
  5. RITUXIMAB [Suspect]
     Indication: B-CELL LYMPHOMA
     Dosage: ON DAY 1  GIVEN EVERY 3 WEEKS FOR 6 CYCLES
     Route: 065
  6. CYCLOPHOSPHAMIDE [Suspect]
     Indication: B-CELL LYMPHOMA
     Dosage: ON DAY 1  GIVEN EVERY 3 WEEKS FOR 6 CYCLES
     Route: 065
  7. LENALIDOMIDE [Suspect]
     Indication: B-CELL LYMPHOMA
     Route: 048
  8. PEGFILGRASTIM [Suspect]
     Indication: B-CELL LYMPHOMA
     Dosage: ON DAY 4
     Route: 065
  9. DOXORUBICIN HCL [Suspect]
     Indication: B-CELL LYMPHOMA
     Dosage: ON DAY 1  GIVEN EVERY 3 WEEKS FOR 6 CYCLES
     Route: 042

REACTIONS (1)
  - PULMONARY EMBOLISM [None]
